FAERS Safety Report 7119415-6 (Version None)
Quarter: 2010Q4

REPORT INFORMATION
  Report Type: 
  Country: None (occurrence: None)
  Receive Date: 20101123
  Receipt Date: 20101111
  Transmission Date: 20110411
  Serious: Yes (Hospitalization)
  Sender: FDA-Public Use
  Company Number: US-ACTELION-A-US2010-41587

PATIENT

DRUGS (1)
  1. TRACLEER [Suspect]
     Dosage: UNK
     Route: 048

REACTIONS (1)
  - PULMONARY FIBROSIS [None]
